FAERS Safety Report 12429851 (Version 1)
Quarter: 2016Q2

REPORT INFORMATION
  Report Type: Spontaneous
  Country: US (occurrence: US)
  Receive Date: 20160602
  Receipt Date: 20160602
  Transmission Date: 20160815
  Serious: No
  Sender: FDA-Public Use
  Company Number: US-NOVELLABS-2015-US-000068

PATIENT
  Sex: Female

DRUGS (1)
  1. TEMAZEPAM. [Suspect]
     Active Substance: TEMAZEPAM
     Route: 048

REACTIONS (2)
  - Hallucination [Unknown]
  - Insomnia [Unknown]

NARRATIVE: CASE EVENT DATE: 2015
